FAERS Safety Report 23712890 (Version 5)
Quarter: 2024Q2

REPORT INFORMATION
  Report Type: Spontaneous
  Country: PT (occurrence: PT)
  Receive Date: 20240405
  Receipt Date: 20240502
  Transmission Date: 20240716
  Serious: Yes (Death)
  Sender: FDA-Public Use
  Company Number: PT-AMGEN-PRTSP2024060177

PATIENT
  Age: 52 Year
  Sex: Female
  Weight: 58 kg

DRUGS (58)
  1. FILGRASTIM [Suspect]
     Active Substance: FILGRASTIM
     Dosage: UNK
     Route: 065
     Dates: end: 20221230
  2. PACLITAXEL [Suspect]
     Active Substance: PACLITAXEL
     Indication: HER2 positive breast cancer
     Dosage: UNK (1 WEEK)
     Route: 042
     Dates: start: 20190813, end: 20200211
  3. TREXALL [Suspect]
     Active Substance: METHOTREXATE SODIUM
     Indication: HER2 positive breast cancer
     Dosage: UNK  (3 WEEK)
     Route: 042
     Dates: start: 20201013, end: 20210103
  4. NAVELBINE [Suspect]
     Active Substance: VINORELBINE TARTRATE
     Indication: HER2 positive breast cancer
     Dosage: UNK
     Route: 042
     Dates: start: 20200310, end: 20201001
  5. PERJETA [Suspect]
     Active Substance: PERTUZUMAB
     Indication: HER2 positive breast cancer
     Dosage: UNK (3 WEEKS)
     Route: 042
     Dates: start: 20190903, end: 20200218
  6. FLUOROPLEX [Suspect]
     Active Substance: FLUOROURACIL
     Indication: HER2 positive breast cancer
     Dosage: UNK (3 WEEKS)
     Route: 042
     Dates: start: 20201013, end: 20210103
  7. CYTOXAN [Suspect]
     Active Substance: CYCLOPHOSPHAMIDE
     Indication: HER2 positive breast cancer
     Dosage: UNK (3 WEEKS)
     Route: 042
     Dates: start: 20201013, end: 20210103
  8. FAM-TRASTUZUMAB DERUXTECAN-NXKI [Suspect]
     Active Substance: FAM-TRASTUZUMAB DERUXTECAN-NXKI
     Indication: HER2 positive breast cancer
     Dosage: 190.8 MICROGRAM (3 WEEKS)
     Route: 042
     Dates: start: 20170614, end: 20180308
  9. FAM-TRASTUZUMAB DERUXTECAN-NXKI [Suspect]
     Active Substance: FAM-TRASTUZUMAB DERUXTECAN-NXKI
     Dosage: 190.8 MICROGRAM (3 WEEKS)
     Route: 042
     Dates: start: 20180417, end: 20180508
  10. FAM-TRASTUZUMAB DERUXTECAN-NXKI [Suspect]
     Active Substance: FAM-TRASTUZUMAB DERUXTECAN-NXKI
     Dosage: 190.8 UG
     Route: 065
     Dates: start: 20190308, end: 20190308
  11. FAM-TRASTUZUMAB DERUXTECAN-NXKI [Suspect]
     Active Substance: FAM-TRASTUZUMAB DERUXTECAN-NXKI
     Dosage: UNK
     Route: 042
     Dates: start: 20210714, end: 20221124
  12. XELODA [Suspect]
     Active Substance: CAPECITABINE
     Dosage: 1500 MILLIGRAM, QD
     Route: 048
     Dates: start: 20180821, end: 20181114
  13. XELODA [Suspect]
     Active Substance: CAPECITABINE
     Dosage: 1300 MILLIGRAM, QD
     Route: 048
     Dates: start: 20181115, end: 20181206
  14. XELODA [Suspect]
     Active Substance: CAPECITABINE
     Dosage: 1800 MILLIGRAM, QD
     Route: 048
     Dates: start: 20180529, end: 20180820
  15. HERCEPTIN [Suspect]
     Active Substance: TRASTUZUMAB
     Indication: HER2 positive breast cancer
     Dosage: UNK (3 WEEKS)
     Route: 058
     Dates: start: 20180529, end: 20190117
  16. HERCEPTIN [Suspect]
     Active Substance: TRASTUZUMAB
     Dosage: UNK (3 WEEKS)
     Route: 058
     Dates: start: 20190117
  17. HERCEPTIN [Suspect]
     Active Substance: TRASTUZUMAB
     Dosage: UNK (3 WEEKS)
     Route: 058
     Dates: start: 2019, end: 20190729
  18. HERCEPTIN [Suspect]
     Active Substance: TRASTUZUMAB
     Dosage: UNK (3 WEEKS)
     Route: 042
     Dates: start: 20221214, end: 20221230
  19. HERCEPTIN [Suspect]
     Active Substance: TRASTUZUMAB
     Dosage: UNK (3 WEEK)
     Route: 058
     Dates: start: 20180529
  20. TAXOL [Suspect]
     Active Substance: PACLITAXEL
     Indication: HER2 positive breast cancer
     Dosage: UNK (3 WEEKS)
     Route: 042
     Dates: start: 20190813, end: 20200211
  21. GEMZAR [Suspect]
     Active Substance: GEMCITABINE HYDROCHLORIDE
     Indication: HER2 positive breast cancer
     Dosage: UNK (3 WEEKS)
     Route: 065
     Dates: start: 20221214, end: 20221230
  22. ADRUCIL [Suspect]
     Active Substance: FLUOROURACIL
     Indication: HER2 positive breast cancer
     Dosage: UNK (3 WEEKS)
     Route: 042
     Dates: start: 20201013
  23. PARAPLATIN [Suspect]
     Active Substance: CARBOPLATIN
     Indication: HER2 positive breast cancer
     Dosage: UNK (3 WEEKS)
     Route: 042
     Dates: start: 20221214, end: 20221230
  24. KADCYLA [Suspect]
     Active Substance: ADO-TRASTUZUMAB EMTANSINE
     Indication: HER2 positive breast cancer
     Dosage: 190.8 MILLIGRAM (3 WEEKS)
     Route: 042
     Dates: start: 20180417, end: 20180508
  25. KADCYLA [Suspect]
     Active Substance: ADO-TRASTUZUMAB EMTANSINE
     Dosage: 190.8 MILLIGRAM (3 WEEKS)
     Route: 042
     Dates: start: 20170614, end: 20180308
  26. TAXOTERE [Suspect]
     Active Substance: DOCETAXEL
     Indication: HER2 positive breast cancer
     Dosage: UNK (3 WEEKS)
     Route: 042
     Dates: start: 20210104, end: 20210629
  27. TYKERB [Suspect]
     Active Substance: LAPATINIB DITOSYLATE
     Indication: HER2 positive breast cancer
     Dosage: 1000 MILLIGRAM, QD
     Route: 048
     Dates: start: 20190207, end: 20190723
  28. EFUDEX [Suspect]
     Active Substance: FLUOROURACIL
     Indication: HER2 positive breast cancer
     Dosage: UNK (3 WEEKS)
     Route: 042
     Dates: start: 20201013, end: 20210103
  29. CAPECITABINE [Suspect]
     Active Substance: CAPECITABINE
     Indication: HER2 positive breast cancer
     Dosage: 1800 MICROGRAM, BID, 86 DAYS
     Route: 065
     Dates: start: 20180529, end: 20180529
  30. CAPECITABINE [Suspect]
     Active Substance: CAPECITABINE
     Dosage: 1800 MICROGRAM, BID, 86 DAYS
     Route: 042
     Dates: end: 20180820
  31. CAPECITABINE [Suspect]
     Active Substance: CAPECITABINE
     Dosage: 1500 MICROGRAM, BID, 86 DAYS
     Route: 065
     Dates: start: 20180821, end: 20180821
  32. CAPECITABINE [Suspect]
     Active Substance: CAPECITABINE
     Dosage: 1500 MICROGRAM, BID, 86 DAYS
     Route: 042
     Dates: end: 20181114
  33. CAPECITABINE [Suspect]
     Active Substance: CAPECITABINE
     Dosage: 1300 MICROGRAM, BID, 22 DAYS
     Route: 042
     Dates: start: 20181115, end: 20181206
  34. CALCIUM CARBONATE [Concomitant]
     Active Substance: CALCIUM CARBONATE
     Dosage: UNK
     Dates: start: 20221230
  35. METOCLOPRAMIDE [Concomitant]
     Active Substance: METOCLOPRAMIDE
     Dosage: 10 MILLIGRAM
     Dates: start: 20221230
  36. FERRIC CARBOXYMALTOSE [Concomitant]
     Active Substance: FERRIC CARBOXYMALTOSE
     Dosage: UNK
  37. IVABRADINE [Concomitant]
     Active Substance: IVABRADINE
     Indication: Ejection fraction decreased
     Dosage: UNK
     Dates: start: 20180308, end: 20221230
  38. ZOLEDRONIC ACID [Concomitant]
     Active Substance: ZOLEDRONIC ACID
     Dosage: UNK
     Dates: start: 20170509, end: 20221230
  39. CHOLECALCIFEROL [Concomitant]
     Active Substance: CHOLECALCIFEROL
     Dosage: 400 INTERNATIONAL UNIT
     Dates: start: 20221230
  40. PREGABALIN [Concomitant]
     Active Substance: PREGABALIN
     Dosage: UNK
     Dates: start: 20221230
  41. IPRATROPIUM BROMIDE [Concomitant]
     Active Substance: IPRATROPIUM BROMIDE\IPRATROPIUM BROMIDE ANHYDROUS
     Dosage: UNK
     Dates: start: 20221230
  42. BACIDERMA [Concomitant]
     Dosage: 10 GRAM
     Dates: start: 20221230
  43. RAMIPRIL [Concomitant]
     Active Substance: RAMIPRIL
     Indication: Ejection fraction decreased
     Dosage: UNK
     Dates: start: 20180308, end: 20221230
  44. AZITHROMYCIN [Concomitant]
     Active Substance: AZITHROMYCIN
     Dosage: UNK
  45. CALCIUM\CHOLECALCIFEROL [Concomitant]
     Active Substance: CALCIUM\CHOLECALCIFEROL
     Dosage: UNK
     Dates: start: 20170509, end: 20221230
  46. ACETAMINOPHEN [Concomitant]
     Active Substance: ACETAMINOPHEN
     Dosage: 1000 MILLIGRAM
     Dates: start: 20221230
  47. LEVOCETIRIZINE [Concomitant]
     Active Substance: LEVOCETIRIZINE
     Dosage: UNK
  48. OXYCODONE [Concomitant]
     Active Substance: OXYCODONE\OXYCODONE HYDROCHLORIDE
     Dosage: 5 MILLIGRAM
     Dates: start: 20221230
  49. PREDNISONE [Concomitant]
     Active Substance: PREDNISONE
     Dosage: UNK
  50. CETIRIZINE [Concomitant]
     Active Substance: CETIRIZINE HYDROCHLORIDE
     Dosage: 10 MILLIGRAM
     Dates: start: 20221230
  51. BUDESONIDE [Concomitant]
     Active Substance: BUDESONIDE
     Dosage: UNK
     Dates: start: 20221230
  52. LOPERAMIDE [Concomitant]
     Active Substance: LOPERAMIDE
     Dosage: 2 MILLIGRAM
     Dates: start: 20221230
  53. PYRIDOXINE [Concomitant]
     Active Substance: PYRIDOXINE
     Dosage: UNK
     Dates: start: 20221230
  54. ACETYLCYSTEINE [Concomitant]
     Active Substance: ACETYLCYSTEINE
     Dosage: UNK
     Dates: start: 20221230
  55. NALOXONE [Concomitant]
     Active Substance: NALOXONE
     Dosage: 2.5 MILLIGRAM
     Dates: start: 20221230
  56. NALOXONE HYDROCHLORIDE\OXYCODONE HYDROCHLORIDE [Concomitant]
     Active Substance: NALOXONE HYDROCHLORIDE\OXYCODONE HYDROCHLORIDE
     Dosage: UNK
     Dates: start: 20170529, end: 20221230
  57. BISOPROLOL [Concomitant]
     Active Substance: BISOPROLOL\BISOPROLOL FUMARATE
     Dosage: UNK
     Dates: start: 20171129, end: 20221230
  58. CARBOPLATIN [Concomitant]
     Active Substance: CARBOPLATIN
     Indication: HER2 positive breast cancer
     Dosage: UNK (3 WEEK)
     Route: 042
     Dates: start: 20221214, end: 20221230

REACTIONS (2)
  - Pancytopenia [Fatal]
  - Pneumonia [Fatal]

NARRATIVE: CASE EVENT DATE: 20221227
